FAERS Safety Report 5898832-6 (Version None)
Quarter: 2008Q3

REPORT INFORMATION
  Report Type: 
  Country: None (occurrence: None)
  Receive Date: 20080925
  Receipt Date: 20080717
  Transmission Date: 20090109
  Serious: No
  Sender: FDA-Public Use
  Company Number: A0738183A

PATIENT
  Age: 53 Year
  Sex: Female

DRUGS (8)
  1. WELLBUTRIN XL [Suspect]
     Indication: ANXIETY
     Dosage: 300MG PER DAY
     Route: 048
     Dates: start: 20071001
  2. ALLEGRA [Concomitant]
  3. NASACORT [Concomitant]
  4. SINGULAIR [Concomitant]
  5. COMBIVENT [Concomitant]
  6. ADVAIR DISKUS 100/50 [Concomitant]
  7. SPIRIVA [Concomitant]
  8. DUONEB [Concomitant]
     Route: 055

REACTIONS (1)
  - CHEST PAIN [None]
